FAERS Safety Report 16373918 (Version 7)
Quarter: 2019Q4

REPORT INFORMATION
  Report Type: Spontaneous
  Country: FR (occurrence: FR)
  Receive Date: 20190530
  Receipt Date: 20191021
  Transmission Date: 20200122
  Serious: Yes (Life-Threatening, Hospitalization)
  Sender: FDA-Public Use
  Company Number: FR-ALNYLAM PHARMACEUTICALS, INC.-ALN-2019-000389

PATIENT
  Age: 60 Year
  Sex: Male
  Weight: 67 kg

DRUGS (7)
  1. ALLOPURINOL. [Concomitant]
     Active Substance: ALLOPURINOL
     Indication: PRODUCT USED FOR UNKNOWN INDICATION
     Dosage: 200 MILLIGRAM, QD
  2. ONPATTRO [Suspect]
     Active Substance: PATISIRAN SODIUM
     Indication: HEREDITARY NEUROPATHIC AMYLOIDOSIS
     Dosage: 20 GRAM, Q3W
     Route: 042
     Dates: start: 20180824, end: 20190525
  3. ONPATTRO [Suspect]
     Active Substance: PATISIRAN SODIUM
     Dosage: UNK
     Route: 042
     Dates: start: 20190902
  4. LASILIX [Concomitant]
     Active Substance: FUROSEMIDE
     Indication: PRODUCT USED FOR UNKNOWN INDICATION
     Dosage: 20 MILLIGRAM, QD
  5. LERCAN [Concomitant]
     Active Substance: LERCANIDIPINE
     Indication: PRODUCT USED FOR UNKNOWN INDICATION
     Dosage: 20 MILLIGRAM, QD
  6. VYNDAQEL [Concomitant]
     Active Substance: TAFAMIDIS MEGLUMINE
     Indication: PRODUCT USED FOR UNKNOWN INDICATION
     Dosage: 1 DOSAGE FORM, QD
  7. CORTISONE [Suspect]
     Active Substance: CORTISONE
     Indication: PROPHYLAXIS

REACTIONS (25)
  - Aphasia [Unknown]
  - Nocturia [Unknown]
  - Haemorrhagic transformation stroke [Recovering/Resolving]
  - Decreased appetite [Unknown]
  - Somnolence [Unknown]
  - Depressed mood [Unknown]
  - Administration site bruise [Unknown]
  - Headache [Unknown]
  - Fall [Unknown]
  - Hypokalaemia [Recovering/Resolving]
  - Acne [Unknown]
  - Fatigue [Unknown]
  - Suicidal ideation [Unknown]
  - Hypertension [Unknown]
  - Overdose [Unknown]
  - Anger [Unknown]
  - Rash [Unknown]
  - Arrhythmia [Unknown]
  - Orthostatic hypotension [Unknown]
  - Energy increased [Unknown]
  - Abnormal behaviour [Unknown]
  - Weight decreased [Unknown]
  - Fatigue [Unknown]
  - Irritability [Unknown]
  - Mental fatigue [Unknown]

NARRATIVE: CASE EVENT DATE: 20190503
